FAERS Safety Report 4590509-2 (Version None)
Quarter: 2005Q1

REPORT INFORMATION
  Report Type: 
  Country: None (occurrence: None)
  Receive Date: 20050217
  Receipt Date: 20050203
  Transmission Date: 20050727
  Serious: Yes (Hospitalization, Other)
  Sender: FDA-Public Use
  Company Number: 2005025455

PATIENT
  Age: 57 Year
  Sex: Female
  Weight: 68.0396 kg

DRUGS (5)
  1. CELEBREX [Suspect]
     Indication: ARTHRALGIA
     Dosage: 600 MG (200 MG , 3 IN 1 D), ORAL
     Route: 048
     Dates: start: 20040101
  2. FELDENE [Suspect]
     Indication: BONE PAIN
  3. MORPHINE SULFATE [Suspect]
     Indication: PAIN
     Dates: end: 20040101
  4. GABAPENTIN [Concomitant]
  5. OXYCODONE HCL [Concomitant]

REACTIONS (13)
  - ANOREXIA [None]
  - ARTHRALGIA [None]
  - BALANCE DISORDER [None]
  - BODY HEIGHT DECREASED [None]
  - CSF TEST ABNORMAL [None]
  - DRUG DEPENDENCE [None]
  - GASTROINTESTINAL DISORDER [None]
  - HEADACHE [None]
  - HYSTERECTOMY [None]
  - PSYCHOMOTOR HYPERACTIVITY [None]
  - RECTAL PROLAPSE REPAIR [None]
  - SURGERY [None]
  - WEIGHT DECREASED [None]
